FAERS Safety Report 9752478 (Version 1)
Quarter: 2013Q4

REPORT INFORMATION
  Report Type: Spontaneous
  Country: US (occurrence: None)
  Receive Date: 20131212
  Receipt Date: 20131212
  Transmission Date: 20140711
  Serious: Yes (Disabling)
  Sender: FDA-Public Use
  Company Number: None

PATIENT
  Age: 56 Year
  Sex: Male
  Weight: 104.33 kg

DRUGS (4)
  1. PRAVASTATIN SODIUM [Suspect]
     Indication: LOW DENSITY LIPOPROTEIN INCREASED
     Route: 048
     Dates: start: 20090610, end: 20131014
  2. ATENOLOL [Concomitant]
  3. AMLODIPINE BESYLATE [Concomitant]
  4. FISH OIL [Concomitant]

REACTIONS (6)
  - Joint range of motion decreased [None]
  - Liver function test abnormal [None]
  - Myalgia [None]
  - Arthralgia [None]
  - Liver injury [None]
  - Neuropathy peripheral [None]
